FAERS Safety Report 4827866-5 (Version None)
Quarter: 2005Q4

REPORT INFORMATION
  Report Type: 
  Country: None (occurrence: None)
  Receive Date: 20051114
  Receipt Date: 20051114
  Transmission Date: 20060501
  Serious: Yes (Life-Threatening)
  Sender: FDA-Public Use
  Company Number: None

PATIENT
  Sex: Male

DRUGS (1)
  1. HYDROMORPHONE 1 MG [Suspect]
     Indication: PAIN
     Dosage: 1 MG   ONCE   IV
     Route: 042
     Dates: start: 20051101, end: 20051101

REACTIONS (2)
  - APNOEA [None]
  - RESPIRATORY DEPRESSION [None]
